FAERS Safety Report 7870083-5 (Version None)
Quarter: 2011Q4

REPORT INFORMATION
  Report Type: 
  Country: None (occurrence: None)
  Receive Date: 20111028
  Receipt Date: 20110113
  Transmission Date: 20120403
  Serious: No
  Sender: FDA-Public Use
  Company Number: US-AMGEN-TCS438914

PATIENT
  Age: 56 Year
  Sex: Male

DRUGS (6)
  1. PLAVIX [Concomitant]
     Dosage: UNK
     Dates: start: 20091019
  2. METOPROLOL TARTRATE [Concomitant]
     Dosage: UNK
     Dates: start: 20090919
  3. LISINOPRIL [Concomitant]
     Dosage: UNK
     Dates: start: 20090911
  4. SIMVASTATIN [Concomitant]
     Dosage: UNK
     Dates: start: 20090919
  5. ENBREL [Suspect]
     Indication: PSORIASIS
     Dosage: 50 MG, QWK
     Route: 058
     Dates: start: 20090820
  6. AMLODIPINE [Concomitant]
     Dosage: UNK
     Dates: start: 20100218

REACTIONS (1)
  - PROSTATIC SPECIFIC ANTIGEN INCREASED [None]
